FAERS Safety Report 7933741-X (Version None)
Quarter: 2011Q4

REPORT INFORMATION
  Report Type: 
  Country: None (occurrence: None)
  Receive Date: 20111122
  Receipt Date: 20111116
  Transmission Date: 20120403
  Serious: Yes (Death, Other)
  Sender: FDA-Public Use
  Company Number: US-PFIZER INC-2011151260

PATIENT
  Sex: Female

DRUGS (1)
  1. CHANTIX [Suspect]
     Indication: SMOKING CESSATION THERAPY
     Dosage: UNK
     Route: 048
     Dates: start: 20090420

REACTIONS (13)
  - DEPRESSION [None]
  - CONFUSIONAL STATE [None]
  - HOSTILITY [None]
  - ANXIETY [None]
  - IMPULSIVE BEHAVIOUR [None]
  - PERSONALITY CHANGE [None]
  - ABNORMAL BEHAVIOUR [None]
  - DISTURBANCE IN ATTENTION [None]
  - COMPLETED SUICIDE [None]
  - MENTAL IMPAIRMENT [None]
  - IMPAIRED REASONING [None]
  - ANGER [None]
  - ROAD TRAFFIC ACCIDENT [None]
